FAERS Safety Report 9629206 (Version 3)
Quarter: 2015Q4

REPORT INFORMATION
  Report Type: Report from Study
  Country: US (occurrence: US)
  Receive Date: 20131017
  Receipt Date: 20151112
  Transmission Date: 20160305
  Serious: Yes (Other)
  Sender: FDA-Public Use
  Company Number: US-ROCHE-1288309

PATIENT
  Age: 55 Year
  Sex: Female

DRUGS (25)
  1. LOVENOX [Concomitant]
     Active Substance: ENOXAPARIN SODIUM
  2. OMEPRAZOLE. [Concomitant]
     Active Substance: OMEPRAZOLE
     Route: 048
  3. POTASSIUM CHLORIDE. [Concomitant]
     Active Substance: POTASSIUM CHLORIDE
     Route: 048
  4. TUSSIONEX PENNKINETIC [Concomitant]
     Active Substance: CHLORPHENIRAMINE\HYDROCODONE
     Dosage: ER 8-10 MG/5ML
     Route: 065
  5. VAGIFEM [Concomitant]
     Active Substance: ESTRADIOL
     Route: 067
  6. LEVOTHYROXINE. [Concomitant]
     Active Substance: LEVOTHYROXINE
     Route: 065
  7. TAXOL [Concomitant]
     Active Substance: PACLITAXEL
     Route: 065
     Dates: start: 201103, end: 201106
  8. WARFARIN [Concomitant]
     Active Substance: WARFARIN
  9. ENOXAPARIN [Concomitant]
     Active Substance: ENOXAPARIN
  10. AVASTIN [Suspect]
     Active Substance: BEVACIZUMAB
     Dosage: ON 10/OCT/2013 AND 30/OCT/2013, SHE RECEIVED DOSE OF BEVACIZUMAB 900 MG.
     Route: 042
  11. DECADRON [Concomitant]
     Active Substance: DEXAMETHASONE
     Route: 042
  12. HEPARIN FLUSH [Concomitant]
     Dosage: 500 UNITS
     Route: 065
  13. VITAMIN B12 [Concomitant]
     Active Substance: CYANOCOBALAMIN
     Route: 030
  14. FOLIC ACID. [Concomitant]
     Active Substance: FOLIC ACID
     Route: 048
  15. CARBOPLATIN. [Concomitant]
     Active Substance: CARBOPLATIN
     Route: 065
     Dates: start: 201103, end: 201106
  16. AVASTIN [Suspect]
     Active Substance: BEVACIZUMAB
     Indication: BRONCHIAL CARCINOMA
     Dosage: 03/APR/2012, 24/APR/2012, 16/MAY/2012, 06/JUN/2012, 19/JUL/2012, 08/AUG/2012, 30/AUG/2012, 20/SEP/20
     Route: 042
     Dates: start: 20120304
  17. ONDANSETRON [Concomitant]
     Active Substance: ONDANSETRON
     Route: 042
  18. ALIMTA [Concomitant]
     Active Substance: PEMETREXED DISODIUM
     Route: 042
  19. HEPARIN FLUSH [Concomitant]
     Dosage: 5000 UNITS
     Route: 040
  20. HYDROCHLOROTHIAZIDE. [Concomitant]
     Active Substance: HYDROCHLOROTHIAZIDE
     Route: 048
  21. UBIQUINOL [Concomitant]
     Active Substance: UBIQUINOL
  22. ZYRTEC [Concomitant]
     Active Substance: CETIRIZINE HYDROCHLORIDE
     Route: 048
  23. ZOMETA [Concomitant]
     Active Substance: ZOLEDRONIC ACID
     Route: 042
  24. VITAMIN B12 [Concomitant]
     Active Substance: CYANOCOBALAMIN
     Route: 058
  25. COLACE [Concomitant]
     Active Substance: DOCUSATE SODIUM
     Route: 048

REACTIONS (19)
  - Pleural effusion [Unknown]
  - Discomfort [Recovered/Resolved]
  - Pleuritic pain [Recovered/Resolved]
  - Nervousness [Unknown]
  - Skin tightness [Unknown]
  - Deep vein thrombosis [Unknown]
  - Gingival bleeding [Unknown]
  - Peripheral swelling [Unknown]
  - Neoplasm malignant [Unknown]
  - Insomnia [Unknown]
  - Neuropathy peripheral [Unknown]
  - Bone cancer [Unknown]
  - Nausea [Unknown]
  - Metastases to bone [Unknown]
  - Protein urine present [Unknown]
  - Hyperthyroidism [Unknown]
  - Anxiety [Unknown]
  - Vomiting [Unknown]
  - Contusion [Unknown]

NARRATIVE: CASE EVENT DATE: 20130829
